FAERS Safety Report 8956502 (Version 1)
Quarter: 2012Q4

REPORT INFORMATION
  Report Type: 
  Country: GB (occurrence: GB)
  Receive Date: 20121210
  Receipt Date: 20121210
  Transmission Date: 20130627
  Serious: Yes (Hospitalization)
  Sender: FDA-Public Use
  Company Number: GB-PFIZER INC-2012309930

PATIENT
  Age: 60 Year
  Sex: Male

DRUGS (9)
  1. AMIODARONE HCL [Suspect]
     Indication: ARRHYTHMIA
     Dosage: 200 mg, 3x/day
     Route: 065
     Dates: start: 20121019
  2. AMIODARONE HCL [Suspect]
     Dosage: 200 mg, 2x/day
     Route: 065
  3. AMIODARONE HCL [Suspect]
     Dosage: 200 mg, Daily
     Route: 065
     Dates: end: 20121120
  4. SALBUTAMOL [Concomitant]
     Dosage: UNK
  5. LANSOPRAZOLE [Concomitant]
     Dosage: UNK
  6. ASPIRIN [Concomitant]
     Dosage: UNK
  7. CITALOPRAM [Concomitant]
     Dosage: UNK
  8. TAZOCIN [Concomitant]
     Dosage: UNK
  9. CIPROFLOXACIN [Concomitant]
     Dosage: UNK

REACTIONS (2)
  - Metabolic alkalosis [Recovering/Resolving]
  - Hypothyroidism [Recovering/Resolving]
